FAERS Safety Report 7625134-X (Version None)
Quarter: 2011Q3

REPORT INFORMATION
  Report Type: 
  Country: None (occurrence: None)
  Receive Date: 20110721
  Receipt Date: 20110711
  Transmission Date: 20111222
  Serious: No
  Sender: FDA-Public Use
  Company Number: US-BIOGENIDEC-2011BI025996

PATIENT
  Age: 41 Year
  Sex: Female

DRUGS (4)
  1. AVONEX [Suspect]
     Route: 030
     Dates: start: 20030101
  2. AVONEX [Suspect]
     Indication: MULTIPLE SCLEROSIS
     Route: 030
     Dates: start: 19970201, end: 20030101
  3. NAPROXEN (ALEVE) [Concomitant]
     Indication: PREMEDICATION
  4. IBUPROFEN (ADVIL) [Concomitant]
     Indication: PREMEDICATION

REACTIONS (3)
  - CHILLS [None]
  - MUSCLE SPASMS [None]
  - ANXIETY [None]
